FAERS Safety Report 4446693-4 (Version None)
Quarter: 2004Q3

REPORT INFORMATION
  Report Type: 
  Country: None (occurrence: None)
  Receive Date: 20040908
  Receipt Date: 20040824
  Transmission Date: 20050211
  Serious: Yes (Congenital Anomaly)
  Sender: FDA-Public Use
  Company Number: 04P-163-0271428-00

PATIENT

DRUGS (5)
  1. KALETRA [Suspect]
  2. NORVIR [Suspect]
  3. AZT [Suspect]
  4. TENOFOVIR [Suspect]
  5. ATAZANAVIR [Suspect]

REACTIONS (3)
  - CONGENITAL ANOMALY [None]
  - DRUG EXPOSURE DURING PREGNANCY [None]
  - TRISOMY 18 [None]
